FAERS Safety Report 12240090 (Version 1)
Quarter: 2016Q2

REPORT INFORMATION
  Report Type: Spontaneous
  Country: ES (occurrence: ES)
  Receive Date: 20160405
  Receipt Date: 20160405
  Transmission Date: 20160815
  Serious: Yes (Disabling, Other)
  Sender: FDA-Public Use
  Company Number: ES-ELI_LILLY_AND_COMPANY-ES201603009986

PATIENT
  Age: 74 Year
  Sex: Female

DRUGS (4)
  1. ZYPREXA [Suspect]
     Active Substance: OLANZAPINE
     Dosage: 15 MG, UNKNOWN
     Route: 065
     Dates: start: 200511, end: 200601
  2. ZYPREXA [Suspect]
     Active Substance: OLANZAPINE
     Indication: MAJOR DEPRESSION
     Dosage: 2.5 MG, UNKNOWN
     Route: 065
     Dates: start: 2005
  3. ZYPREXA [Suspect]
     Active Substance: OLANZAPINE
     Indication: ABNORMAL BEHAVIOUR
     Dosage: 10 MG, UNKNOWN
     Route: 065
  4. DIEMIL [Concomitant]
     Indication: ABNORMAL BEHAVIOUR
     Dosage: UNK, UNKNOWN
     Route: 065
     Dates: end: 200601

REACTIONS (12)
  - Ulcerative keratitis [Recovered/Resolved with Sequelae]
  - Fall [Unknown]
  - Major depression [Unknown]
  - Kyphoscoliosis [Recovered/Resolved with Sequelae]
  - Spinal fracture [Unknown]
  - Mixed dementia [Unknown]
  - Constipation [Unknown]
  - Off label use [Unknown]
  - Skin ulcer [Recovered/Resolved]
  - Parkinson^s disease [Recovered/Resolved]
  - Dysphagia [Recovered/Resolved]
  - Blindness [Unknown]

NARRATIVE: CASE EVENT DATE: 2005
